FAERS Safety Report 12994895 (Version 2)
Quarter: 2017Q1

REPORT INFORMATION
  Report Type: Spontaneous
  Country: US (occurrence: US)
  Receive Date: 20161202
  Receipt Date: 20170106
  Transmission Date: 20170428
  Serious: Yes (Other)
  Sender: FDA-Public Use
  Company Number: US-ENDO PHARMACEUTICALS INC.-2016-004838

PATIENT
  Sex: Female
  Weight: 40.86 kg

DRUGS (2)
  1. KLONOPIN [Suspect]
     Active Substance: CLONAZEPAM
     Indication: PRODUCT USED FOR UNKNOWN INDICATION
     Route: 065
  2. OXYCODONE HCL 5MG [Suspect]
     Active Substance: OXYCODONE
     Indication: PAIN MANAGEMENT
     Route: 065

REACTIONS (17)
  - Hair injury [Not Recovered/Not Resolved]
  - Erythema [Unknown]
  - Hair colour changes [Not Recovered/Not Resolved]
  - Hyperaesthesia [Not Recovered/Not Resolved]
  - Toxic shock syndrome [Not Recovered/Not Resolved]
  - Alopecia [Not Recovered/Not Resolved]
  - Tooth disorder [Not Recovered/Not Resolved]
  - Gingival recession [Not Recovered/Not Resolved]
  - Multiple chemical sensitivity [Not Recovered/Not Resolved]
  - Insomnia [Not Recovered/Not Resolved]
  - Skin wrinkling [Not Recovered/Not Resolved]
  - Trichorrhexis [Not Recovered/Not Resolved]
  - Oedema [Unknown]
  - Withdrawal syndrome [Unknown]
  - Lip dry [Not Recovered/Not Resolved]
  - Autoimmune disorder [Unknown]
  - General physical health deterioration [Unknown]
